FAERS Safety Report 7138148-3 (Version None)
Quarter: 2010Q4

REPORT INFORMATION
  Report Type: 
  Country: None (occurrence: None)
  Receive Date: 20101206
  Receipt Date: 20101130
  Transmission Date: 20110411
  Serious: Yes (Hospitalization)
  Sender: FDA-Public Use
  Company Number: US-AMGEN-USANI2010003697

PATIENT

DRUGS (12)
  1. ETANERCEPT [Suspect]
     Indication: PSORIASIS
     Dosage: 50 MG, QWK
     Route: 058
     Dates: start: 20070112
  2. MELATONIN [Concomitant]
  3. VITAMIN B                          /00056102/ [Concomitant]
  4. BUPROPION [Concomitant]
  5. MULTI-VITAMINS [Concomitant]
  6. TRIAMCINOLONE [Concomitant]
  7. CLOBETASOL [Concomitant]
  8. LISINOPRIL [Concomitant]
  9. CELEXA [Concomitant]
  10. CALCIUM [Concomitant]
  11. LOVAZA [Concomitant]
  12. MAGNESIUM [Concomitant]

REACTIONS (3)
  - DRUG INEFFECTIVE [None]
  - FEMORAL ARTERY OCCLUSION [None]
  - PERIPHERAL VASCULAR DISORDER [None]
